FAERS Safety Report 9872308 (Version 2)
Quarter: 2014Q1

REPORT INFORMATION
  Report Type: Spontaneous
  Country: JP (occurrence: JP)
  Receive Date: 20140205
  Receipt Date: 20140221
  Transmission Date: 20141002
  Serious: Yes (Hospitalization)
  Sender: FDA-Public Use
  Company Number: JP-PFIZER INC-2014027408

PATIENT
  Age: 72 Year
  Sex: Male
  Weight: 65 kg

DRUGS (5)
  1. CLINDAMYCIN PHOSPHATE [Suspect]
     Dosage: 600 MG, 3X/DAY
  2. URIEF [Concomitant]
     Dosage: 4 MG, 2X/DAY
  3. RENIVACE [Concomitant]
     Dosage: 2.5 MG, 1X/DAY
  4. CRESTOR [Concomitant]
     Dosage: 2.5 MG, 1X/DAY
  5. VESICARE [Concomitant]
     Dosage: 5 MG, 1X/DAY

REACTIONS (3)
  - Pyrexia [Unknown]
  - Pruritus [Unknown]
  - Urticaria [Unknown]
